FAERS Safety Report 5836476-2 (Version None)
Quarter: 2008Q3

REPORT INFORMATION
  Report Type: 
  Country: None (occurrence: None)
  Receive Date: 20080805
  Receipt Date: 20080723
  Transmission Date: 20090109
  Serious: Yes (Death, Hospitalization)
  Sender: FDA-Public Use
  Company Number: 2008AL008826

PATIENT
  Age: 79 Year
  Sex: Female

DRUGS (1)
  1. DIGOXIN [Suspect]
     Dosage: PO
     Route: 048
     Dates: end: 20080217

REACTIONS (6)
  - BRAIN DEATH [None]
  - CAROTID ARTERY STENT INSERTION [None]
  - CEREBROVASCULAR ACCIDENT [None]
  - NAUSEA [None]
  - RENAL FAILURE [None]
  - VOMITING [None]
